FAERS Safety Report 4263706-3 (Version None)
Quarter: 2004Q1

REPORT INFORMATION
  Report Type: 
  Country: None (occurrence: None)
  Receive Date: 20040102
  Receipt Date: 20031222
  Transmission Date: 20041129
  Serious: Yes (Hospitalization)
  Sender: FDA-Public Use
  Company Number: FR-JNJFOC-20031204461

PATIENT

DRUGS (3)
  1. REMICADE [Suspect]
     Indication: ANKYLOSING SPONDYLITIS
     Dosage: INTRAVENOUS
     Route: 042
     Dates: start: 20030702, end: 20031105
  2. NOCTRAN (NOCTRAN 10) [Concomitant]
  3. ACETAMINOPHEN [Concomitant]

REACTIONS (12)
  - ANKYLOSING SPONDYLITIS [None]
  - BACK PAIN [None]
  - BRONCHITIS [None]
  - DYSPEPSIA [None]
  - ESCHERICHIA URINARY TRACT INFECTION [None]
  - HAEMANGIOMA [None]
  - INFLAMMATION LOCALISED [None]
  - LUMBAR PUNCTURE [None]
  - POLLAKIURIA [None]
  - PYELONEPHRITIS [None]
  - SPINAL DISORDER [None]
  - SPONDYLITIS [None]
